FAERS Safety Report 4334202-X (Version None)
Quarter: 2004Q2

REPORT INFORMATION
  Report Type: 
  Country: None (occurrence: None)
  Receive Date: 20040402
  Receipt Date: 20040323
  Transmission Date: 20050107
  Serious: Yes (Death, Other)
  Sender: FDA-Public Use
  Company Number: 205475

PATIENT
  Age: 69 Year
  Sex: Male

DRUGS (1)
  1. ACTILYSE (ALTEPLASE) PWDR + SOLVENT,INFUSION SOLN [Suspect]
     Indication: CEREBROVASCULAR ACCIDENT

REACTIONS (2)
  - GLIOBLASTOMA MULTIFORME [None]
  - HYDROCEPHALUS [None]
